FAERS Safety Report 4966838-7 (Version None)
Quarter: 2006Q2

REPORT INFORMATION
  Report Type: 
  Country: None (occurrence: None)
  Receive Date: 20060407
  Receipt Date: 20060329
  Transmission Date: 20061013
  Serious: No
  Sender: FDA-Public Use
  Company Number: FR-MERCK-0604FRA00003M

PATIENT
  Age: 32 Year
  Sex: Female

DRUGS (1)
  1. COZAAR [Suspect]
     Indication: HYPERTENSION
     Route: 048

REACTIONS (11)
  - CONGENITAL MEGACOLON [None]
  - DEATH NEONATAL [None]
  - DRUG EXPOSURE DURING PREGNANCY [None]
  - FOETAL GROWTH RETARDATION [None]
  - NEONATAL ANURIA [None]
  - NEONATAL HYPOTENSION [None]
  - NEONATAL RESPIRATORY FAILURE [None]
  - OLIGOHYDRAMNIOS [None]
  - PREGNANCY [None]
  - RENAL APLASIA [None]
  - SKULL MALFORMATION [None]
